FAERS Safety Report 8836761 (Version 1)
Quarter: 2012Q4

REPORT INFORMATION
  Report Type: 
  Country: US (occurrence: US)
  Receive Date: 20121012
  Receipt Date: 20121012
  Transmission Date: 20130627
  Serious: Yes (Hospitalization)
  Sender: FDA-Public Use
  Company Number: US-BAYER-2012-104055

PATIENT
  Age: 47 Year
  Sex: Female
  Weight: 75.28 kg

DRUGS (10)
  1. YAZ [Suspect]
  2. YASMIN [Suspect]
  3. GIANVI [Suspect]
  4. CLONAZEPAM [Concomitant]
  5. PEPCID [Concomitant]
  6. ASPIRIN [Concomitant]
     Dosage: UNK
     Dates: start: 20120416
  7. BENADRYL [Concomitant]
  8. METHYLPREDNISOLONE [Concomitant]
     Dosage: UNK
     Dates: start: 20120405
  9. ARIXTRA [Concomitant]
  10. OMEPRAZOLE [Concomitant]

REACTIONS (4)
  - Pulmonary embolism [None]
  - Deep vein thrombosis [None]
  - Thrombophlebitis superficial [None]
  - Pelvic venous thrombosis [None]
